FAERS Safety Report 16760861 (Version 2)
Quarter: 2019Q3

REPORT INFORMATION
  Report Type: Spontaneous
  Country: JP (occurrence: JP)
  Receive Date: 20190830
  Receipt Date: 20190925
  Transmission Date: 20191005
  Serious: Yes (Death)
  Sender: FDA-Public Use
  Company Number: JP-ROCHE-2391782

PATIENT
  Age: 78 Year
  Sex: Female

DRUGS (17)
  1. FIRSTCIN [Suspect]
     Active Substance: CEFOZOPRAN HYDROCHLORIDE
     Indication: PNEUMONIA
     Route: 041
     Dates: start: 20190520, end: 20190527
  2. TAGRISSO [Suspect]
     Active Substance: OSIMERTINIB
     Route: 048
  3. MAGMITT [Suspect]
     Active Substance: MAGNESIUM OXIDE
     Route: 048
  4. CALONAL [Concomitant]
     Active Substance: ACETAMINOPHEN
     Indication: FRACTURE
     Route: 065
     Dates: start: 20190421, end: 20190427
  5. LOXOPROFEN [Concomitant]
     Active Substance: LOXOPROFEN
     Indication: FRACTURE
     Route: 065
     Dates: start: 20190419, end: 20190419
  6. MAGMITT [Suspect]
     Active Substance: MAGNESIUM OXIDE
     Indication: CONSTIPATION
     Route: 048
     Dates: start: 20190423, end: 20190511
  7. ARGAMATE [Concomitant]
     Active Substance: CALCIUM POLYSTYRENE SULFONATE
     Indication: HYPERLIPIDAEMIA
     Route: 065
     Dates: start: 20190419, end: 20190421
  8. MALFA [Concomitant]
     Active Substance: ALUMINUM HYDROXIDE\MAGNESIUM HYDROXIDE
     Indication: OESOPHAGITIS
     Route: 065
     Dates: start: 20190506, end: 20190527
  9. YOKUKANSAN [Concomitant]
     Active Substance: HERBALS
     Indication: DELIRIUM
     Route: 065
  10. DENOSINE [GANCICLOVIR] [Suspect]
     Active Substance: GANCICLOVIR
     Indication: PNEUMONIA
     Route: 042
     Dates: start: 20190524, end: 20190526
  11. TAGRISSO [Suspect]
     Active Substance: OSIMERTINIB
     Indication: NON-SMALL CELL LUNG CANCER
     Route: 048
     Dates: start: 20190508, end: 20190520
  12. ESOMEPRAZOLE. [Concomitant]
     Active Substance: ESOMEPRAZOLE MAGNESIUM
     Indication: OESOPHAGITIS
     Route: 048
     Dates: start: 20190512, end: 20190527
  13. AMIKACIN SULFATE. [Suspect]
     Active Substance: AMIKACIN SULFATE
     Indication: PRODUCT USE IN UNAPPROVED INDICATION
     Route: 065
  14. NOVAMIN [PROCHLORPERAZINE] [Concomitant]
     Indication: NAUSEA
     Route: 065
     Dates: start: 20190418, end: 20190527
  15. TRAMACET [Concomitant]
     Active Substance: ACETAMINOPHEN\TRAMADOL
     Indication: FRACTURE
     Route: 065
     Dates: start: 20190418, end: 20190527
  16. BETANIS [Concomitant]
     Active Substance: MIRABEGRON
     Indication: POLLAKIURIA
     Route: 065
     Dates: start: 20190424, end: 20190514
  17. SENNOSIDE [SENNOSIDE A+B] [Concomitant]
     Active Substance: SENNOSIDES A AND B
     Indication: CONSTIPATION
     Route: 065
     Dates: start: 20190421, end: 20190421

REACTIONS (2)
  - Pneumonia cytomegaloviral [Fatal]
  - Pneumonia bacterial [Fatal]
